FAERS Safety Report 7346059-3 (Version None)
Quarter: 2011Q1

REPORT INFORMATION
  Report Type: 
  Country: None (occurrence: None)
  Receive Date: 20110311
  Receipt Date: 20110303
  Transmission Date: 20110831
  Serious: No
  Sender: FDA-Public Use
  Company Number: US-BIOGENIDEC-2011BI008490

PATIENT
  Age: 47 Year
  Sex: Female

DRUGS (4)
  1. AVONEX [Suspect]
     Route: 030
     Dates: start: 20090428, end: 20090601
  2. AVONEX [Suspect]
     Indication: MULTIPLE SCLEROSIS
     Route: 030
     Dates: start: 20031006, end: 20060614
  3. AVONEX [Suspect]
     Route: 030
     Dates: start: 20070405, end: 20070501
  4. AVONEX [Suspect]
     Route: 030
     Dates: start: 20100501, end: 20100501

REACTIONS (2)
  - NEURALGIA [None]
  - MOBILITY DECREASED [None]
